FAERS Safety Report 21208231 (Version 2)
Quarter: 2022Q3

REPORT INFORMATION
  Report Type: Spontaneous
  Country: JP (occurrence: JP)
  Receive Date: 20220812
  Receipt Date: 20220818
  Transmission Date: 20221027
  Serious: Yes (Other)
  Sender: FDA-Public Use
  Company Number: JP-OTSUKA-2021_025991

PATIENT
  Sex: Female

DRUGS (2)
  1. ABILIFY [Suspect]
     Active Substance: ARIPIPRAZOLE
     Indication: Bipolar disorder
     Dosage: UNK
     Route: 048
  2. ABILIFY [Suspect]
     Active Substance: ARIPIPRAZOLE
     Indication: Bipolar disorder
     Dosage: UNK, ONCE EVERY 5 WEEKS
     Route: 030

REACTIONS (25)
  - Genital haemorrhage [Unknown]
  - Angina pectoris [Unknown]
  - Chromaturia [Unknown]
  - Adverse event [Unknown]
  - Eye disorder [Unknown]
  - Lymph node pain [Unknown]
  - Adverse reaction [Unknown]
  - Food craving [Recovering/Resolving]
  - Tension headache [Unknown]
  - Hypoaesthesia [Unknown]
  - Feeling abnormal [Unknown]
  - Neck pain [Unknown]
  - Pollakiuria [Unknown]
  - Appetite disorder [Recovering/Resolving]
  - Chest discomfort [Unknown]
  - Malaise [Unknown]
  - Dyspnoea [Unknown]
  - Back pain [Unknown]
  - Arthralgia [Unknown]
  - Musculoskeletal stiffness [Unknown]
  - Fatigue [Unknown]
  - Akathisia [Recovering/Resolving]
  - Weight increased [Not Recovered/Not Resolved]
  - Insomnia [Unknown]
  - Inappropriate schedule of product administration [Unknown]
